FAERS Safety Report 6037478-6 (Version None)
Quarter: 2009Q1

REPORT INFORMATION
  Report Type: 
  Country: None (occurrence: None)
  Receive Date: 20090114
  Receipt Date: 20090106
  Transmission Date: 20090719
  Serious: Yes (Other)
  Sender: FDA-Public Use
  Company Number: US-ELI_LILLY_AND_COMPANY-US200811004635

PATIENT
  Age: 57 Year
  Sex: Female
  Weight: 100.68 kg

DRUGS (4)
  1. BYETTA [Suspect]
     Indication: TYPE 2 DIABETES MELLITUS
     Dosage: 10 UG, 2/D
     Route: 058
     Dates: start: 20070801, end: 20080820
  2. METFORMIN HCL [Concomitant]
     Dosage: 500 UNK, 2/D
  3. SYNTHROID [Concomitant]
     Dosage: 112 UNK, UNK
  4. LISINOPRIL [Concomitant]
     Dosage: 10 UNK, UNK

REACTIONS (2)
  - HEPATIC STEATOSIS [None]
  - PANCREATITIS [None]
